FAERS Safety Report 4876245-3 (Version None)
Quarter: 2006Q1

REPORT INFORMATION
  Report Type: 
  Country: None (occurrence: None)
  Receive Date: 20060106
  Receipt Date: 20051226
  Transmission Date: 20060701
  Serious: Yes (Hospitalization)
  Sender: FDA-Public Use
  Company Number: RS005694-F

PATIENT
  Age: 83 Year
  Sex: Female

DRUGS (6)
  1. RABEPRAZOLE SODIUM [Suspect]
     Dosage: 1 IN 1 D, ORAL
     Route: 048
     Dates: end: 20051122
  2. ACETAMINOPHEN [Suspect]
     Dosage: 2 IN 1 D, ORAL
     Route: 048
     Dates: end: 20051122
  3. PREVISCAN                  (FLUINDIONE) [Suspect]
     Dates: end: 20051120
  4. IMOVANE                (ZOPICLONE) [Concomitant]
  5. STRUCTUM                 (CHONDROITIN SULFATE SODIUM) [Concomitant]
  6. STABLON                       (TIANEPTINE) [Concomitant]

REACTIONS (4)
  - ANAEMIA [None]
  - DRUG INTERACTION [None]
  - HAEMATOMA [None]
  - INTERNATIONAL NORMALISED RATIO INCREASED [None]
